FAERS Safety Report 5919061-3 (Version None)
Quarter: 2008Q3

REPORT INFORMATION
  Report Type: 
  Country: None (occurrence: None)
  Receive Date: 20080909
  Receipt Date: 20061011
  Transmission Date: 20090109
  Serious: Yes (Death, Hospitalization)
  Sender: FDA-Public Use
  Company Number: 163-20785-06100496

PATIENT
  Age: 4 Year
  Sex: Male
  Weight: 19 kg

DRUGS (4)
  1. THALOMID [Suspect]
     Indication: BRAIN NEOPLASM MALIGNANT
     Dosage: 150 MG, QHS, ORAL
     Route: 048
     Dates: start: 20060807, end: 20060918
  2. ETOPOSIDE [Suspect]
     Indication: BRAIN NEOPLASM MALIGNANT
     Dosage: 50 MG, QHS, ORAL
     Route: 048
     Dates: start: 20060807, end: 20060918
  3. CELECOXIB [Suspect]
     Indication: BRAIN NEOPLASM MALIGNANT
     Dosage: 100 MG, BID, ORAL
     Route: 048
     Dates: start: 20060807, end: 20060918
  4. FENOFIBRATE [Suspect]
     Indication: BRAIN NEOPLASM MALIGNANT
     Dosage: 43 MG, BID, ORAL
     Route: 048
     Dates: start: 20060807, end: 20060918

REACTIONS (3)
  - CONVULSION [None]
  - DISEASE PROGRESSION [None]
  - MENTAL STATUS CHANGES [None]
